FAERS Safety Report 6491793-0 (Version None)
Quarter: 2009Q4

REPORT INFORMATION
  Report Type: 
  Country: None (occurrence: None)
  Receive Date: 20091210
  Receipt Date: 20091202
  Transmission Date: 20100525
  Serious: Yes (Other)
  Sender: FDA-Public Use
  Company Number: 235017K09USA

PATIENT
  Age: 41 Year
  Sex: Female

DRUGS (6)
  1. REBIF [Suspect]
     Indication: MULTIPLE SCLEROSIS
     Dosage: 44 MCG, 3 IN 1 WEEKS, SUBCUTANEOUS
     Route: 058
     Dates: start: 20090117
  2. ZOLOFT [Concomitant]
  3. ZIAC [Concomitant]
  4. MARCOBID (NITROFURANTOIN) [Concomitant]
  5. DONA GLUCOSAMINE (GLUCOSAMINE /00943601/) [Concomitant]
  6. SEASONIQUE (ORAL CONTRACEPTIVE NOS) [Concomitant]

REACTIONS (3)
  - FALL [None]
  - LOWER LIMB FRACTURE [None]
  - OSTEOTOMY [None]
